FAERS Safety Report 21949147 (Version 5)
Quarter: 2023Q2

REPORT INFORMATION
  Report Type: Report from Study
  Country: JP (occurrence: JP)
  Receive Date: 20230203
  Receipt Date: 20230519
  Transmission Date: 20230721
  Serious: Yes (Death, Life-Threatening, Hospitalization, Disabling)
  Sender: FDA-Public Use
  Company Number: JP-ABBVIE-4293387

PATIENT
  Age: 89 Year
  Sex: Male
  Weight: 52 kg

DRUGS (8)
  1. RINVOQ [Suspect]
     Active Substance: UPADACITINIB
     Indication: Rheumatoid arthritis
     Dosage: FORM STRENGTH: 7.5 MILLIGRAM
     Route: 048
     Dates: start: 20210517, end: 20230112
  2. CARVEDILOL [Concomitant]
     Active Substance: CARVEDILOL
     Indication: Product used for unknown indication
     Dosage: 2.5 MILLIGRAM
     Route: 048
  3. LOSARTAN POTASSIUM [Concomitant]
     Active Substance: LOSARTAN POTASSIUM
     Indication: Product used for unknown indication
     Dosage: 25 MILLIGRAM
     Route: 048
  4. FERROUS SULFATE [Concomitant]
     Active Substance: FERROUS SULFATE
     Indication: Product used for unknown indication
     Dosage: 105 MILLIGRAM
     Route: 048
  5. RABEPRAZOLE SODIUM [Concomitant]
     Active Substance: RABEPRAZOLE SODIUM
     Indication: Product used for unknown indication
     Dosage: 10 MILLIGRAM
     Route: 048
  6. ASPIRIN\CLOPIDOGREL [Concomitant]
     Active Substance: ASPIRIN\CLOPIDOGREL
     Indication: Product used for unknown indication
     Dosage: 1 TABLET, CLOPIDEROL SULFATE
     Route: 048
  7. ICOSAPENT ETHYL [Concomitant]
     Active Substance: ICOSAPENT ETHYL
     Indication: Product used for unknown indication
     Dosage: 900 MILLIGRAM
     Route: 048
  8. TOLVAPTAN [Concomitant]
     Active Substance: TOLVAPTAN
     Indication: Product used for unknown indication
     Dosage: 7.5 MILLIGRAM
     Route: 048

REACTIONS (4)
  - Gastroenteritis [Fatal]
  - Cardiac failure [Fatal]
  - Pneumonia [Fatal]
  - Blood pressure decreased [Unknown]

NARRATIVE: CASE EVENT DATE: 20221230
